FAERS Safety Report 19064630 (Version 3)
Quarter: 2023Q2

REPORT INFORMATION
  Report Type: Spontaneous
  Country: BE (occurrence: BE)
  Receive Date: 20210326
  Receipt Date: 20230529
  Transmission Date: 20230722
  Serious: Yes (Other)
  Sender: FDA-Public Use
  Company Number: NVSC2020BE173822

PATIENT
  Age: 74 Year
  Sex: Male
  Weight: 77 kg

DRUGS (35)
  1. ETOPOSIDE [Suspect]
     Active Substance: ETOPOSIDE
     Indication: Small cell lung cancer extensive stage
     Dosage: 173.11 MG
     Route: 042
     Dates: start: 20200203
  2. ETOPOSIDE [Suspect]
     Active Substance: ETOPOSIDE
     Dosage: 142.54 MG
     Route: 042
     Dates: start: 20200302
  3. ETOPOSIDE [Suspect]
     Active Substance: ETOPOSIDE
     Dosage: UNK
     Route: 065
     Dates: start: 20201124, end: 20201126
  4. CARBOPLATIN [Suspect]
     Active Substance: CARBOPLATIN
     Indication: Small cell lung cancer extensive stage
     Dosage: 400 MG
     Route: 065
     Dates: start: 20200203
  5. CARBOPLATIN [Suspect]
     Active Substance: CARBOPLATIN
     Dosage: 300 MG
     Route: 065
     Dates: start: 20200302
  6. PACLITAXEL [Suspect]
     Active Substance: PACLITAXEL
     Indication: Non-small cell lung cancer
     Dosage: UNK
     Route: 065
  7. ATEZOLIZUMAB [Suspect]
     Active Substance: ATEZOLIZUMAB
     Indication: Small cell lung cancer extensive stage
     Dosage: 1200 MG
     Route: 042
     Dates: start: 20200203
  8. ATEZOLIZUMAB [Suspect]
     Active Substance: ATEZOLIZUMAB
     Dosage: SUBSEQUENT DOSE RECEIVED ON 02/MAR/2020 AND 20/APR/2020
     Route: 042
     Dates: start: 20200302, end: 20200302
  9. ATEZOLIZUMAB [Suspect]
     Active Substance: ATEZOLIZUMAB
     Dosage: 1200 MG, Q3W
     Route: 042
     Dates: start: 20200420, end: 20200420
  10. BEVACIZUMAB [Suspect]
     Active Substance: BEVACIZUMAB
     Indication: Non-small cell lung cancer
     Dosage: UNK
     Route: 065
  11. ASPIRIN [Concomitant]
     Active Substance: ASPIRIN
     Indication: Product used for unknown indication
     Dosage: UNK UNK, QD
     Route: 065
     Dates: start: 2016
  12. SYNGEL [Concomitant]
     Indication: Radiation oesophagitis
     Dosage: UNK, 0.33 DAY
     Route: 065
     Dates: start: 20190603, end: 202003
  13. PERINDOPRIL [Concomitant]
     Active Substance: PERINDOPRIL
     Indication: Hypertension
     Dosage: UNK, QD
     Route: 065
     Dates: start: 2016
  14. ALLOPURINOL [Concomitant]
     Active Substance: ALLOPURINOL
     Indication: Gout
     Dosage: UNK, QD
     Route: 065
     Dates: start: 2016
  15. LIPEGFILGRASTIM [Concomitant]
     Active Substance: LIPEGFILGRASTIM
     Indication: Product used for unknown indication
     Dosage: UNK, QD
     Route: 065
     Dates: start: 20200402, end: 20200402
  16. LIPEGFILGRASTIM [Concomitant]
     Active Substance: LIPEGFILGRASTIM
     Dosage: UNK, QD
     Route: 065
     Dates: start: 20200605, end: 20200605
  17. LIPEGFILGRASTIM [Concomitant]
     Active Substance: LIPEGFILGRASTIM
     Dosage: UNK, QMO
     Route: 065
     Dates: start: 20201124
  18. PANTOMED [Concomitant]
     Indication: Radiation oesophagitis
     Dosage: UNK (0.5 DAY)
     Route: 065
     Dates: start: 20190603
  19. DAFALGAN [Concomitant]
     Active Substance: ACETAMINOPHEN
     Indication: Radiation oesophagitis
     Dosage: (0.25 DAY)
     Route: 065
     Dates: start: 20190603, end: 202003
  20. FLUOROMETHOLONE [Concomitant]
     Active Substance: FLUOROMETHOLONE
     Indication: Product used for unknown indication
     Dosage: UNK, QD
     Route: 065
     Dates: start: 20190320
  21. DIFLUCAN [Concomitant]
     Active Substance: FLUCONAZOLE
     Indication: Radiation oesophagitis
     Dosage: UNK, QD
     Route: 065
     Dates: start: 20190603, end: 202003
  22. DEXAMETHASONE [Concomitant]
     Active Substance: DEXAMETHASONE
     Indication: Product used for unknown indication
     Dosage: 12 MG
     Route: 065
     Dates: start: 20200203, end: 20200203
  23. DEXAMETHASONE [Concomitant]
     Active Substance: DEXAMETHASONE
     Dosage: 12 MG
     Route: 065
     Dates: start: 20200302, end: 20200302
  24. DEXAMETHASONE [Concomitant]
     Active Substance: DEXAMETHASONE
     Dosage: 12 MG
     Route: 065
     Dates: start: 20200420, end: 20200420
  25. DEXAMETHASONE [Concomitant]
     Active Substance: DEXAMETHASONE
     Dosage: UNK, QD
     Route: 065
     Dates: start: 20201124, end: 20201124
  26. DEXAMETHASONE [Concomitant]
     Active Substance: DEXAMETHASONE
     Dosage: UNK, QD
     Route: 065
     Dates: start: 20201215, end: 20201215
  27. AKYNZEO [Concomitant]
     Indication: Product used for unknown indication
     Dosage: 300.5 MG
     Route: 065
     Dates: start: 20200203, end: 20200203
  28. AKYNZEO [Concomitant]
     Dosage: 1200 MG
     Route: 065
     Dates: start: 20200203, end: 20200203
  29. AKYNZEO [Concomitant]
     Dosage: 300.5 MG
     Route: 065
     Dates: start: 20200420, end: 20200420
  30. AKYNZEO [Concomitant]
     Dosage: UNK, QD
     Route: 065
     Dates: start: 20201124, end: 20201124
  31. AKYNZEO [Concomitant]
     Dosage: UNK, QD
     Route: 065
     Dates: start: 20201215, end: 20201215
  32. ALIZAPRIDE HYDROCHLORIDE [Concomitant]
     Active Substance: ALIZAPRIDE HYDROCHLORIDE
     Indication: Product used for unknown indication
     Dosage: UNK, QD
     Route: 065
     Dates: start: 20201124
  33. PERINDOPRIL [Concomitant]
     Active Substance: PERINDOPRIL
     Indication: Hypertension
     Dosage: UNK, QD
     Route: 065
     Dates: start: 2016
  34. CARBOPLATIN [Concomitant]
     Active Substance: CARBOPLATIN
     Indication: Product used for unknown indication
     Dosage: UNK
     Route: 065
     Dates: start: 20201124, end: 20210126
  35. CISPLATIN [Concomitant]
     Active Substance: CISPLATIN
     Indication: Product used for unknown indication
     Dosage: UNK
     Route: 065

REACTIONS (6)
  - Neutropenia [Recovered/Resolved]
  - Dermatitis [Recovering/Resolving]
  - Psoriasis [Recovered/Resolved]
  - Stomatitis [Recovered/Resolved]
  - Stomatitis [Recovered/Resolved]
  - Leukopenia [Recovered/Resolved]

NARRATIVE: CASE EVENT DATE: 20200220
